FAERS Safety Report 18222338 (Version 1)
Quarter: 2020Q3

REPORT INFORMATION
  Report Type: Spontaneous
  Country: US (occurrence: US)
  Receive Date: 20200901
  Receipt Date: 20200901
  Transmission Date: 20201103
  Serious: Yes (Hospitalization)
  Sender: FDA-Public Use
  Company Number: None

PATIENT
  Age: 81 Year
  Sex: Female

DRUGS (1)
  1. TOBRAMYCIN 300MG/5ML NEB [Suspect]
     Active Substance: TOBRAMYCIN
     Indication: BRONCHIECTASIS
     Dates: start: 20190908

REACTIONS (2)
  - Mitral valve replacement [None]
  - Mitral valve repair [None]

NARRATIVE: CASE EVENT DATE: 20200825
